FAERS Safety Report 5325852-2 (Version None)
Quarter: 2007Q2

REPORT INFORMATION
  Report Type: 
  Country: None (occurrence: None)
  Receive Date: 20070510
  Receipt Date: 20070424
  Transmission Date: 20071010
  Serious: Yes (Death)
  Sender: FDA-Public Use
  Company Number: 2007JP001739

PATIENT
  Age: 50 Year
  Sex: Female

DRUGS (1)
  1. PROGRAF [Suspect]
     Indication: BONE MARROW TRANSPLANT

REACTIONS (2)
  - BLOOD STEM CELL TRANSPLANT FAILURE [None]
  - MULTI-ORGAN FAILURE [None]
